FAERS Safety Report 4591251-4 (Version None)
Quarter: 2005Q1

REPORT INFORMATION
  Report Type: 
  Country: None (occurrence: None)
  Receive Date: 20050224
  Receipt Date: 20050224
  Transmission Date: 20050727
  Serious: Yes (Hospitalization)
  Sender: FDA-Public Use
  Company Number: None

PATIENT
  Age: 56 Year
  Sex: Male
  Weight: 103.5 kg

DRUGS (7)
  1. PREDNISONE [Suspect]
     Indication: PAIN
     Dosage: 60 MG/D X 3 D, 40 MG/D X 3 D 20 MG/D X 3D , 10 MG/D X 3D PO
     Route: 048
     Dates: start: 20050203, end: 20050215
  2. CLONAZEPAM [Concomitant]
  3. AMIODARONE HCL (GENEVA) [Concomitant]
  4. METOPROLOL TARTRATE [Concomitant]
  5. OXYCODONE HCL [Concomitant]
  6. METHYLPHENIDATE [Concomitant]
  7. ASPIRIN [Concomitant]

REACTIONS (2)
  - OEDEMA [None]
  - PSYCHOTIC DISORDER [None]
